FAERS Safety Report 7689956-1 (Version None)
Quarter: 2011Q3

REPORT INFORMATION
  Report Type: 
  Country: None (occurrence: None)
  Receive Date: 20110818
  Receipt Date: 20110808
  Transmission Date: 20111222
  Serious: No
  Sender: FDA-Public Use
  Company Number: US-BIOGENIDEC-2011BI030536

PATIENT
  Age: 50 Year
  Sex: Female

DRUGS (1)
  1. TYSABRI [Suspect]
     Indication: MULTIPLE SCLEROSIS
     Route: 042
     Dates: start: 20100219

REACTIONS (7)
  - STRESS [None]
  - VISION BLURRED [None]
  - MUSCLE SPASMS [None]
  - PANIC ATTACK [None]
  - NAUSEA [None]
  - POOR VENOUS ACCESS [None]
  - VISUAL IMPAIRMENT [None]
